FAERS Safety Report 18206171 (Version 5)
Quarter: 2021Q2

REPORT INFORMATION
  Report Type: Report from Study
  Country: KR (occurrence: KR)
  Receive Date: 20200827
  Receipt Date: 20210519
  Transmission Date: 20210717
  Serious: Yes (Hospitalization)
  Sender: FDA-Public Use
  Company Number: KR-SA-2020SA148350

PATIENT
  Age: 69 Year
  Sex: Male
  Weight: 70.3 kg

DRUGS (43)
  1. TANTUM [BENZYDAMINE HYDROCHLORIDE] [Concomitant]
     Indication: PROPHYLAXIS
     Dosage: UNK
     Route: 049
     Dates: start: 20200317
  2. AMARYL [Concomitant]
     Active Substance: GLIMEPIRIDE
     Dosage: UNK
     Route: 048
     Dates: start: 20200602
  3. REFRESH PLUS [Concomitant]
     Active Substance: CARBOXYMETHYLCELLULOSE SODIUM
     Indication: PROPHYLAXIS
     Dosage: UNK
     Route: 047
     Dates: start: 20200603
  4. COMBIFLEX [AMINO ACIDS NOS;CALCIUM;GLUCOSE;MAGNESIUM;POTASSIUM;SODIUM] [Concomitant]
     Dosage: UNK
     Route: 040
     Dates: start: 20200606, end: 20200610
  5. MUCOMYST [Concomitant]
     Active Substance: ACETYLCYSTEINE
     Dosage: UNK
     Route: 055
     Dates: start: 20200607, end: 20200612
  6. DOCETAXEL. [Suspect]
     Active Substance: DOCETAXEL
     Indication: LUNG ADENOCARCINOMA
     Dosage: 75 MG/M2, Q3W
     Route: 042
     Dates: start: 20200602, end: 20200602
  7. TARGIN [Concomitant]
     Active Substance: NALOXONE HYDROCHLORIDE\OXYCODONE HYDROCHLORIDE
     Dosage: UNK
     Route: 048
     Dates: start: 20200519
  8. SODIUM BICARBONATE. [Concomitant]
     Active Substance: SODIUM BICARBONATE
     Indication: PROPHYLAXIS
     Dosage: UNK
     Route: 049
     Dates: start: 20200317
  9. XANAX [Concomitant]
     Active Substance: ALPRAZOLAM
     Indication: PROPHYLAXIS
     Dosage: UNK
     Route: 048
     Dates: start: 20200601
  10. NASEA OD [Concomitant]
     Active Substance: RAMOSETRON HYDROCHLORIDE
     Dosage: UNK
     Route: 048
     Dates: start: 20200601, end: 20200705
  11. OXYCODONE [Concomitant]
     Active Substance: OXYCODONE
     Dosage: UNK
     Route: 048
     Dates: start: 20200519
  12. MAGNESIUM OXIDE. [Concomitant]
     Active Substance: MAGNESIUM OXIDE
     Dosage: UNK
     Route: 048
     Dates: start: 20200506
  13. COUGH SYRUP [ANTIMONY POTASSIUM TARTRATE;PAPAVER SOMNIFERUM TINCTURE;T [Concomitant]
     Dosage: UNK
     Route: 048
     Dates: start: 20200601, end: 20200623
  14. SANCUSO [Concomitant]
     Active Substance: GRANISETRON
     Dosage: PATCH
     Route: 062
     Dates: start: 20200601, end: 20200608
  15. FEROBA YOU [Concomitant]
     Dosage: UNK
     Route: 048
     Dates: start: 20200408, end: 20200701
  16. NORVASC [Concomitant]
     Active Substance: AMLODIPINE BESYLATE
     Dosage: UNK
     Route: 048
     Dates: start: 20200508
  17. ONSERAN [Concomitant]
     Dosage: UNK
     Route: 048
     Dates: start: 20200601, end: 20200608
  18. ADELAVIN NO.9 [Concomitant]
     Dosage: UNK
     Route: 040
     Dates: start: 20200606, end: 20200609
  19. FURTMAN [Concomitant]
     Dosage: UNK
     Route: 040
     Dates: start: 20200606, end: 20200610
  20. VENTOLIN [Concomitant]
     Active Substance: ALBUTEROL SULFATE
     Dosage: UNK
     Route: 055
     Dates: start: 20200607, end: 20200607
  21. KABITWIN PERI [Concomitant]
     Indication: PROPHYLAXIS
     Dosage: UNK
     Route: 040
     Dates: start: 20200607, end: 20200609
  22. LYRICA [Concomitant]
     Active Substance: PREGABALIN
     Dosage: UNK
     Route: 048
     Dates: start: 20200519, end: 20200710
  23. TAZOLACTAM [Concomitant]
     Dosage: UNK
     Route: 040
     Dates: start: 20200606, end: 20200612
  24. K DOWN [Concomitant]
     Dosage: UNK
     Route: 054
     Dates: start: 20200606, end: 20200606
  25. MUCOSTEN [Concomitant]
     Dosage: UNK
     Route: 040
     Dates: start: 20200606, end: 20200606
  26. CEFTRIAXONE. [Concomitant]
     Active Substance: CEFTRIAXONE
     Dosage: UNK
     Route: 040
     Dates: start: 20200606, end: 20200606
  27. MVI [VITAMINS NOS] [Concomitant]
     Indication: PROPHYLAXIS
     Dosage: UNK
     Route: 040
     Dates: start: 20200606, end: 20200610
  28. MVI [VITAMINS NOS] [Concomitant]
     Dosage: UNK
     Route: 040
     Dates: start: 20200607, end: 20200609
  29. EXOPERIN [Concomitant]
     Dosage: UNK
     Route: 048
     Dates: start: 20200317, end: 20200626
  30. CODEINE [Concomitant]
     Active Substance: CODEINE
     Dosage: UNK
     Route: 048
     Dates: start: 20200519, end: 20200625
  31. COZAAR PLUS [Concomitant]
     Active Substance: HYDROCHLOROTHIAZIDE\LOSARTAN POTASSIUM
     Dosage: UNK
     Route: 048
     Dates: start: 20200508, end: 20200617
  32. ACTOS [Concomitant]
     Active Substance: PIOGLITAZONE HYDROCHLORIDE
     Dosage: UNK
     Route: 048
     Dates: start: 20200602, end: 20200612
  33. ATROVENT UDV [Concomitant]
     Active Substance: IPRATROPIUM BROMIDE
     Dosage: UNK
     Route: 055
     Dates: start: 20200607, end: 20200612
  34. HUMALOG [Concomitant]
     Active Substance: INSULIN LISPRO
     Dosage: UNK
     Route: 040
     Dates: start: 20200607, end: 20200608
  35. NORMAL SALINE [Concomitant]
     Active Substance: SODIUM CHLORIDE
     Dosage: UNK
     Route: 017
     Dates: start: 20200606, end: 20200606
  36. DUPHALAC EASY [Concomitant]
     Active Substance: LACTULOSE
     Dosage: UNK
     Route: 048
     Dates: start: 20200508, end: 20200625
  37. HUMULIN R [Concomitant]
     Active Substance: INSULIN HUMAN
     Dosage: UNK
     Route: 042
     Dates: start: 20200606, end: 20200609
  38. CRAVIT [Concomitant]
     Active Substance: LEVOFLOXACIN
     Dosage: UNK
     Route: 040
     Dates: start: 20200606, end: 20200606
  39. LASIX [Concomitant]
     Active Substance: FUROSEMIDE
     Indication: PROPHYLAXIS
     Dosage: UNK
     Route: 042
     Dates: start: 20200607, end: 20200607
  40. TRESTAN [CYANOCOBALAMIN] [Concomitant]
     Dosage: UNK
     Route: 048
     Dates: start: 20200507, end: 20200714
  41. OMAPONE PERI [Concomitant]
     Indication: PROPHYLAXIS
     Dosage: UNK
     Route: 040
     Dates: start: 20200601, end: 20200603
  42. NORPIN [NOREPINEPHRINE] [Concomitant]
     Indication: PROPHYLAXIS
     Dosage: UNK
     Route: 040
     Dates: start: 20200606, end: 20200606
  43. HUMALOG [Concomitant]
     Active Substance: INSULIN LISPRO
     Dosage: UNK
     Route: 058
     Dates: start: 20200607, end: 20200607

REACTIONS (3)
  - Lethargy [Recovered/Resolved]
  - Neutrophil count decreased [Recovered/Resolved]
  - Transaminases increased [Recovered/Resolved]

NARRATIVE: CASE EVENT DATE: 20200606
